FAERS Safety Report 6172535-5 (Version None)
Quarter: 2009Q2

REPORT INFORMATION
  Report Type: 
  Country: None (occurrence: None)
  Receive Date: 20090427
  Receipt Date: 20090416
  Transmission Date: 20091009
  Serious: Yes (Death, Life-Threatening, Other)
  Sender: FDA-Public Use
  Company Number: 2008-00980

PATIENT
  Age: 58 Year
  Sex: Male
  Weight: 87 kg

DRUGS (20)
  1. VELCADE [Suspect]
     Indication: MULTIPLE MYELOMA
     Dosage: 2.10 MG, INTRAVENOUS ; 2.5 MG, INTRAVENOUS ; 1.3 MG, INTRAVENOUS
     Route: 042
     Dates: start: 20071113, end: 20071123
  2. VELCADE [Suspect]
     Indication: MULTIPLE MYELOMA
     Dosage: 2.10 MG, INTRAVENOUS ; 2.5 MG, INTRAVENOUS ; 1.3 MG, INTRAVENOUS
     Route: 042
     Dates: start: 20071212, end: 20071212
  3. VELCADE [Suspect]
     Indication: MULTIPLE MYELOMA
     Dosage: 2.10 MG, INTRAVENOUS ; 2.5 MG, INTRAVENOUS ; 1.3 MG, INTRAVENOUS
     Route: 042
     Dates: start: 20071217, end: 20071225
  4. DEXAMETHASONE TAB [Suspect]
     Indication: MULTIPLE MYELOMA
     Dosage: 20 MG, INTRAVENOUS
     Route: 042
     Dates: start: 20071113, end: 20071117
  5. ITRACONAZOLE [Suspect]
     Indication: PROPHYLAXIS
     Dosage: 200 MG, ORAL
     Route: 048
     Dates: end: 20080205
  6. ACETAMINOPHEN [Suspect]
     Indication: DRUG USE FOR UNKNOWN INDICATION
     Dosage: 200 MG, ORAL
     Route: 048
     Dates: start: 20071228
  7. MAXIPIME [Concomitant]
  8. OMEPRAZOLE [Concomitant]
  9. OXYCONTIN [Concomitant]
  10. TORSEMIDE [Concomitant]
  11. LEVOFLOXACIN [Concomitant]
  12. CORTRIL [Concomitant]
  13. SLOW-K [Concomitant]
  14. NEUROTROPIN (ORGAN LYSATE, STANDARDIZED) [Concomitant]
  15. BIOFERMIN (STREPTOCOCCUS FAECALIS, LACTOBACILLUS ACIDOPHILUS, BACILLUS [Concomitant]
  16. PURSENNID (SENNA LEAF) [Concomitant]
  17. LAXOBERON (SODIUM PICOSULFATE) [Concomitant]
  18. BACLOFEN [Concomitant]
  19. CLONAZEPAM [Concomitant]
  20. LENDORM [Concomitant]

REACTIONS (5)
  - CELLULITIS [None]
  - HERPES PHARYNGITIS [None]
  - IMMUNODEFICIENCY [None]
  - PLATELET COUNT DECREASED [None]
  - PNEUMONIA BACTERIAL [None]
